FAERS Safety Report 20508612 (Version 1)
Quarter: 2022Q1

REPORT INFORMATION
  Report Type: Report from Study
  Country: US (occurrence: US)
  Receive Date: 20220223
  Receipt Date: 20220223
  Transmission Date: 20220423
  Serious: Yes (Other)
  Sender: FDA-Public Use
  Company Number: US-BRISTOL-MYERS SQUIBB COMPANY-BMS-2022-024518

PATIENT
  Age: 70 Year
  Sex: Male
  Weight: 78.017 kg

DRUGS (8)
  1. APIXABAN [Suspect]
     Active Substance: APIXABAN
     Indication: Cerebrovascular accident prophylaxis
     Route: 065
  2. APIXABAN [Suspect]
     Active Substance: APIXABAN
     Indication: Ischaemic heart disease prophylaxis
  3. HUMIRA [Suspect]
     Active Substance: ADALIMUMAB
     Indication: Psoriasis
     Dosage: CITRATE FREE (40 MG,1 IN 2 WK)
     Route: 058
     Dates: start: 2017
  4. HUMIRA [Suspect]
     Active Substance: ADALIMUMAB
     Indication: Psoriatic arthropathy
     Dosage: CITRATE FREE (40 MG,1 IN 2 WK)
     Route: 058
     Dates: start: 2019, end: 20210513
  5. HUMIRA [Suspect]
     Active Substance: ADALIMUMAB
     Dosage: CITRATE FREE (40 MG,1 IN 2 WK)
     Route: 058
     Dates: start: 20210710
  6. PFIZER-BIONTECH COVID-19 VACCINE [Concomitant]
     Active Substance: TOZINAMERAN
     Indication: COVID-19 immunisation
     Dosage: DOSE 1ST (1 IN 1 ONCE)
     Route: 030
     Dates: start: 20210219, end: 20210219
  7. PFIZER-BIONTECH COVID-19 VACCINE [Concomitant]
     Active Substance: TOZINAMERAN
     Dosage: DOSE 2ND (1 IN 1 ONCE)
     Route: 030
     Dates: start: 20210312, end: 20210312
  8. PFIZER-BIONTECH COVID-19 VACCINE [Concomitant]
     Active Substance: TOZINAMERAN
     Dosage: BOOSTER DOSE (1 IN 1 ONCE)
     Route: 030
     Dates: start: 202109, end: 202109

REACTIONS (10)
  - Prostate cancer [Recovering/Resolving]
  - Large intestine polyp [Unknown]
  - Haemobilia [Not Recovered/Not Resolved]
  - Thrombosis [Unknown]
  - Prostatic asymmetry [Unknown]
  - Prostatic specific antigen increased [Recovered/Resolved]
  - Prostatomegaly [Unknown]
  - Bladder irritation [Not Recovered/Not Resolved]
  - Radiation injury [Unknown]
  - Psoriasis [Not Recovered/Not Resolved]

NARRATIVE: CASE EVENT DATE: 20200101
